FAERS Safety Report 16828300 (Version 1)
Quarter: 2019Q3

REPORT INFORMATION
  Report Type: Spontaneous
  Country: US (occurrence: US)
  Receive Date: 20190919
  Receipt Date: 20190919
  Transmission Date: 20191005
  Serious: Yes (Other)
  Sender: FDA-Public Use
  Company Number: US-SA-2019SA258586

PATIENT
  Age: 63 Year
  Sex: Female
  Weight: 61.2 kg

DRUGS (41)
  1. ACETYLSALICYLIC ACID [Suspect]
     Active Substance: ASPIRIN
     Dosage: 100 MG
     Route: 048
     Dates: start: 20190601, end: 20190601
  2. ATENOLOL. [Concomitant]
     Active Substance: ATENOLOL
     Dosage: 100 MG
     Dates: start: 20180223
  3. METHOTREXATE. [Concomitant]
     Active Substance: METHOTREXATE
     Dosage: 20 MG
     Dates: start: 20171117
  4. IOPAMIDOL [Concomitant]
     Active Substance: IOPAMIDOL
     Dosage: 50 UNK
     Dates: start: 20190531, end: 20190531
  5. FOLIC ACID. [Concomitant]
     Active Substance: FOLIC ACID
     Indication: PROPHYLAXIS
     Dosage: 2 MG
     Dates: start: 20180202, end: 20190604
  6. PROPOFOL. [Concomitant]
     Active Substance: PROPOFOL
     Indication: ADVERSE EVENT
     Dosage: 150 MG
     Dates: start: 20190610, end: 20190610
  7. FENTANYL. [Concomitant]
     Active Substance: FENTANYL
     Indication: ADVERSE EVENT
     Dosage: 100 UNK
     Dates: start: 20190610, end: 20190610
  8. DEXAMETHASONE. [Concomitant]
     Active Substance: DEXAMETHASONE
     Indication: ADVERSE EVENT
     Dosage: 10 MG
     Dates: start: 20190610, end: 20190610
  9. VITAMINS NOS [Concomitant]
     Active Substance: VITAMINS
     Dosage: 1 U
     Dates: start: 20181128
  10. PLAVIX [Suspect]
     Active Substance: CLOPIDOGREL BISULFATE
     Dosage: 75 MG
     Route: 048
     Dates: start: 20190602, end: 20190625
  11. SIMVASTATIN. [Concomitant]
     Active Substance: SIMVASTATIN
     Dosage: 40 MG
     Dates: start: 20190531
  12. GADOBENATE DIMEGLUMINE [Concomitant]
     Active Substance: GADOBENATE DIMEGLUMINE
     Dosage: 10 UNK
     Dates: start: 20190531, end: 20190531
  13. SODIUM CHLORIDE. [Concomitant]
     Active Substance: SODIUM CHLORIDE
     Indication: ADVERSE EVENT
     Dosage: 1000 MG
     Dates: start: 20190610, end: 20190610
  14. PLAVIX [Suspect]
     Active Substance: CLOPIDOGREL BISULFATE
     Dosage: 75 MG
     Route: 048
     Dates: start: 20190601, end: 20190601
  15. VENLAFAXINE [Concomitant]
     Active Substance: VENLAFAXINE HYDROCHLORIDE
     Dosage: 75 MG
     Dates: start: 20190605
  16. CLOBETASOL 0.05% [Concomitant]
     Active Substance: CLOBETASOL
     Indication: ADVERSE EVENT
     Dosage: 2 G, BID (APPLY TWICE DAILY)
     Dates: start: 20190610
  17. MORPHINE [Concomitant]
     Active Substance: MORPHINE
     Indication: ADVERSE EVENT
     Dosage: 4 MG
     Dates: start: 20190610, end: 20190610
  18. ONDANSETRON [Concomitant]
     Active Substance: ONDANSETRON
     Indication: ADVERSE EVENT
     Dosage: 4 MG
     Dates: start: 20190610, end: 20190610
  19. CETACAINE [BENZOCAINE;BUTYL AMINOBENZOATE;TETRACAINE HYDROCHLORIDE] [Concomitant]
     Dosage: 2 UNK
     Dates: start: 20190603, end: 20190603
  20. ACETYLSALICYLIC ACID [Suspect]
     Active Substance: ASPIRIN
     Dosage: 100 MG
     Route: 048
     Dates: start: 20190627, end: 20190725
  21. ADALIMUMAB [Concomitant]
     Active Substance: ADALIMUMAB
     Dosage: 40 MG
     Dates: start: 20171220
  22. PLAVIX [Suspect]
     Active Substance: CLOPIDOGREL BISULFATE
     Dosage: 75 MG
     Route: 048
     Dates: start: 20190626, end: 20190626
  23. ACETYLSALICYLIC ACID [Suspect]
     Active Substance: ASPIRIN
     Dosage: 100 MG
     Route: 048
     Dates: start: 20190602, end: 20190625
  24. ACETYLSALICYLIC ACID [Suspect]
     Active Substance: ASPIRIN
     Dosage: 100 MG
     Route: 048
     Dates: start: 20190626, end: 20190626
  25. EPHEDRINE. [Concomitant]
     Active Substance: EPHEDRINE
     Indication: ADVERSE EVENT
     Dosage: 30 MG
     Dates: start: 20190610, end: 20190610
  26. VOLTAREN [DICLOFENAC] [Concomitant]
     Active Substance: DICLOFENAC SODIUM
     Dosage: 1 UNK
     Dates: start: 20180223, end: 20190531
  27. LACTATED RINGERS SOLUTION [Concomitant]
     Active Substance: CALCIUM CHLORIDE\POTASSIUM CHLORIDE\SODIUM CHLORIDE\SODIUM LACTATE
     Dosage: 1100 UNK
     Dates: start: 20190610, end: 20190611
  28. ESTRADIOL. [Concomitant]
     Active Substance: ESTRADIOL
     Dosage: 1 MG
     Dates: start: 20180506, end: 20190603
  29. XYLOCAINE [Concomitant]
     Active Substance: LIDOCAINE HYDROCHLORIDE
     Dosage: 10 UNK
     Dates: start: 20190603, end: 20190603
  30. FENTANYL. [Concomitant]
     Active Substance: FENTANYL
     Dosage: 50 UNK
     Dates: start: 20190603, end: 20190603
  31. PROGESTERONE. [Concomitant]
     Active Substance: PROGESTERONE
     Dosage: 100 MG
     Dates: start: 20180425, end: 20190603
  32. ACETYLSALICYLIC ACID [Suspect]
     Active Substance: ASPIRIN
     Dosage: 100 MG
     Route: 048
     Dates: start: 20190826, end: 20190826
  33. CEFAZOLIN [Concomitant]
     Active Substance: CEFAZOLIN
     Indication: ADVERSE EVENT
     Dosage: 1 G
     Dates: start: 20190610, end: 20190611
  34. ACETYLSALICYLIC ACID [Suspect]
     Active Substance: ASPIRIN
     Dosage: 100 MG
     Route: 048
     Dates: start: 20190726, end: 20190726
  35. ACETYLSALICYLIC ACID [Suspect]
     Active Substance: ASPIRIN
     Dosage: 100 MG
     Route: 048
     Dates: start: 20190727, end: 20190825
  36. PAROXETINE. [Concomitant]
     Active Substance: PAROXETINE
     Dosage: 20 MG
     Dates: start: 20190531, end: 20190604
  37. MIDAZOLAM [Concomitant]
     Active Substance: MIDAZOLAM HYDROCHLORIDE
     Indication: ADVERSE EVENT
     Dosage: 2 MG
     Dates: start: 20190610, end: 20190610
  38. MIDAZOLAM [Concomitant]
     Active Substance: MIDAZOLAM HYDROCHLORIDE
     Dosage: 3 MG
     Dates: start: 20190603, end: 20190603
  39. LIDOCAINE. [Concomitant]
     Active Substance: LIDOCAINE
     Indication: ADVERSE EVENT
     Dosage: 60 MG
     Dates: start: 20190610, end: 20190610
  40. LACTATED RINGERS SOLUTION [Concomitant]
     Active Substance: CALCIUM CHLORIDE\POTASSIUM CHLORIDE\SODIUM CHLORIDE\SODIUM LACTATE
     Dosage: 20 UNK
     Dates: start: 20190603, end: 20190603
  41. METHOCARBAMOL. [Concomitant]
     Active Substance: METHOCARBAMOL
     Dosage: 500 MG
     Dates: start: 20190223, end: 20190531

REACTIONS (1)
  - Skin laceration [Recovered/Resolved]

NARRATIVE: CASE EVENT DATE: 20190610
